FAERS Safety Report 8557074-6 (Version None)
Quarter: 2012Q3

REPORT INFORMATION
  Report Type: 
  Country: None (occurrence: None)
  Receive Date: 20120720
  Receipt Date: 20120710
  Transmission Date: 20120928
  Serious: Yes (Death, Hospitalization, Other)
  Sender: FDA-Public Use
  Company Number: AUR-APL-2012-02926

PATIENT
  Age: 87 Year
  Sex: Male

DRUGS (11)
  1. OXCARBAZEPINE [Suspect]
     Indication: NEURALGIA
     Dosage: DAILY (150 MG)
  2. IPRATROPIUM BROMIDE AND ALBUTEROL SULFATE (COMBIVENT) [Concomitant]
  3. LEVOFLOXACIN [Concomitant]
  4. SERTRALINE HYDROCHLORIDE [Suspect]
     Indication: PRODUCT USED FOR UNKNOWN INDICATION
     Dosage: DAILY (50 MG), ORAL
     Route: 048
  5. ATENOLOL [Concomitant]
  6. FUROSEMIDE [Concomitant]
  7. GLIPIZIDE [Concomitant]
  8. GABAPENTIN [Concomitant]
  9. FENTANYL [Concomitant]
  10. ASPIRIN [Concomitant]
  11. MIDAZOLAM HCL [Concomitant]

REACTIONS (6)
  - CELLULITIS [None]
  - SEROTONIN SYNDROME [None]
  - DRUG INTERACTION [None]
  - HYPOTENSION [None]
  - SEPTIC SHOCK [None]
  - AREFLEXIA [None]
